FAERS Safety Report 14969688 (Version 2)
Quarter: 2018Q3

REPORT INFORMATION
  Report Type: Spontaneous
  Country: US (occurrence: US)
  Receive Date: 20180604
  Receipt Date: 20180703
  Transmission Date: 20181010
  Serious: Yes (Other)
  Sender: FDA-Public Use
  Company Number: US-BAYER-2018-079466

PATIENT
  Age: 71 Year

DRUGS (3)
  1. XOFIGO [Suspect]
     Active Substance: RADIUM RA-223 DICHLORIDE
     Dosage: UNK
     Dates: start: 20180525
  2. XOFIGO [Suspect]
     Active Substance: RADIUM RA-223 DICHLORIDE
     Dosage: UNK
     Dates: start: 20180314
  3. ZYTIGA [Concomitant]
     Active Substance: ABIRATERONE ACETATE
     Indication: NEUROPATHY PERIPHERAL
     Dosage: UNK
     Dates: start: 20170713, end: 20180206

REACTIONS (3)
  - Pain [Recovering/Resolving]
  - Fall [None]
  - Rib fracture [None]

NARRATIVE: CASE EVENT DATE: 20180412
